FAERS Safety Report 18640555 (Version 1)
Quarter: 2020Q4

REPORT INFORMATION
  Report Type: Spontaneous
  Country: US (occurrence: US)
  Receive Date: 20201221
  Receipt Date: 20201221
  Transmission Date: 20210114
  Serious: Yes (Other)
  Sender: FDA-Public Use
  Company Number: US-ROCHE-2731732

PATIENT
  Age: 46 Year
  Sex: Female
  Weight: 53.57 kg

DRUGS (2)
  1. XGEVA [Concomitant]
     Active Substance: DENOSUMAB
     Dates: start: 202008
  2. ROZLYTREK [Suspect]
     Active Substance: ENTRECTINIB
     Indication: UTERINE LEIOMYOSARCOMA
     Dosage: TAKES 3 CAPSULES TO MAKE UP THE 600 MG DOSE
     Route: 048
     Dates: start: 20201123

REACTIONS (9)
  - Cough [Unknown]
  - Off label use [Unknown]
  - Feeling drunk [Unknown]
  - Intentional product use issue [Unknown]
  - Vision blurred [Unknown]
  - Taste disorder [Not Recovered/Not Resolved]
  - Dyspnoea at rest [Unknown]
  - Injury [Unknown]
  - Vomiting [Recovered/Resolved]

NARRATIVE: CASE EVENT DATE: 20201123
